FAERS Safety Report 25339902 (Version 1)
Quarter: 2025Q2

REPORT INFORMATION
  Report Type: Spontaneous
  Country: US (occurrence: US)
  Receive Date: 20250521
  Receipt Date: 20250521
  Transmission Date: 20250717
  Serious: No
  Sender: STALLERGENES
  Company Number: US-STALCOR-2025-AER-00875

PATIENT
  Age: 16 Year
  Sex: Male

DRUGS (1)
  1. PALFORZIA [Suspect]
     Active Substance: PEANUT
     Indication: Food allergy
     Dosage: REACTIVE DOSE, LEVEL 1 AT 3MG- DISPENSED ON 11-DEC-2024
     Route: 048
     Dates: start: 202412

REACTIONS (3)
  - Adverse food reaction [Unknown]
  - Exposure to allergen [Unknown]
  - Product monitoring error [Unknown]

NARRATIVE: CASE EVENT DATE: 20241201
